FAERS Safety Report 8417151-7 (Version None)
Quarter: 2012Q2

REPORT INFORMATION
  Report Type: 
  Country: None (occurrence: None)
  Receive Date: 20120606
  Receipt Date: 20120601
  Transmission Date: 20120825
  Serious: Yes (Hospitalization)
  Sender: FDA-Public Use
  Company Number: US-ACTELION-A-NJ2012-66082

PATIENT

DRUGS (1)
  1. EPOPROSTENOL SODIUM [Suspect]
     Indication: PULMONARY ARTERIAL HYPERTENSION
     Dosage: 72 NG/KG, PER MIN
     Route: 041
     Dates: start: 20100903

REACTIONS (4)
  - HAEMOPTYSIS [None]
  - CATHETER SITE DISCHARGE [None]
  - PNEUMONIA [None]
  - CATHETER SITE ERYTHEMA [None]
